FAERS Safety Report 4426424-4 (Version None)
Quarter: 2004Q3

REPORT INFORMATION
  Report Type: 
  Country: None (occurrence: None)
  Receive Date: 20040811
  Receipt Date: 20040728
  Transmission Date: 20050211
  Serious: Yes (Death)
  Sender: FDA-Public Use
  Company Number: EWC040740092

PATIENT
  Age: 72 Year
  Sex: Male

DRUGS (1)
  1. XIGRIS [Suspect]
     Indication: SEPSIS
     Dosage: 24 UG/KG/HR
     Dates: start: 20040725, end: 20040725

REACTIONS (3)
  - INJECTION SITE HAEMORRHAGE [None]
  - SEPTIC SHOCK [None]
  - WOUND HAEMORRHAGE [None]
